FAERS Safety Report 11115605 (Version 1)
Quarter: 2015Q2

REPORT INFORMATION
  Report Type: Spontaneous
  Country: US (occurrence: None)
  Receive Date: 20150513
  Receipt Date: 20150513
  Transmission Date: 20150821
  Serious: Yes (Other)
  Sender: FDA-Public Use
  Company Number: US-H14001-15-00691

PATIENT
  Age: 60 Year
  Sex: Female

DRUGS (4)
  1. PAZOPANIB [Suspect]
     Active Substance: PAZOPANIB
     Indication: AESTHESIONEUROBLASTOMA
     Route: 048
     Dates: start: 201204, end: 201301
  2. CISPLATIN (CISPLATIN) [Suspect]
     Active Substance: CISPLATIN
     Indication: AESTHESIONEUROBLASTOMA
     Dates: start: 201203, end: 2013
  3. ETOPOSIDE (ETOPOSIDE) [Suspect]
     Active Substance: ETOPOSIDE
     Indication: AESTHESIONEUROBLASTOMA
     Dates: start: 201203, end: 2013
  4. TOPOTECAN [Suspect]
     Active Substance: TOPOTECAN\TOPOTECAN HYDROCHLORIDE
     Indication: AESTHESIONEUROBLASTOMA
     Dates: start: 201204, end: 2013

REACTIONS (6)
  - Oesophageal stenosis [None]
  - Aesthesioneuroblastoma [None]
  - Neoplasm recurrence [None]
  - Aphasia [None]
  - Salivary gland cancer [None]
  - Metastases to central nervous system [None]

NARRATIVE: CASE EVENT DATE: 201301
